FAERS Safety Report 25536709 (Version 2)
Quarter: 2025Q3

REPORT INFORMATION
  Report Type: Report from Study
  Country: US (occurrence: US)
  Receive Date: 20250709
  Receipt Date: 20250808
  Transmission Date: 20251021
  Serious: No
  Sender: SANOFI AVENTIS
  Company Number: US-SANOFI-02581867

PATIENT
  Age: 64 Year
  Sex: Male

DRUGS (6)
  1. DUPILUMAB [Suspect]
     Active Substance: DUPILUMAB
     Indication: Neurodermatitis
     Dosage: 300 MG, QOW
     Route: 058
     Dates: start: 20240207
  2. LISINOPRIL [Concomitant]
     Active Substance: LISINOPRIL
  3. HUMULIN 50/50 [Concomitant]
     Active Substance: INSULIN HUMAN
  4. SIMPONI [Concomitant]
     Active Substance: GOLIMUMAB
  5. ELIQUIS [Concomitant]
     Active Substance: APIXABAN
  6. CREON [Concomitant]
     Active Substance: PANCRELIPASE AMYLASE\PANCRELIPASE LIPASE\PANCRELIPASE PROTEASE

REACTIONS (2)
  - Inappropriate schedule of product administration [Unknown]
  - Product storage error [Unknown]
